FAERS Safety Report 4480099-7 (Version None)
Quarter: 2004Q4

REPORT INFORMATION
  Report Type: 
  Country: None (occurrence: None)
  Receive Date: 20041018
  Receipt Date: 20041005
  Transmission Date: 20050328
  Serious: Yes (Hospitalization, Other)
  Sender: FDA-Public Use
  Company Number: 2004075224

PATIENT
  Age: 77 Year
  Sex: Female

DRUGS (7)
  1. LIPITOR [Suspect]
     Indication: BLOOD CHOLESTEROL INCREASED
     Dates: end: 20040531
  2. CENTRUM (MINERALS NOS, VITAMINS NOS) [Concomitant]
  3. PANTOPRAZOLE (PANTOPRAZOLE) [Concomitant]
  4. CLOPIDOGREL BISULFATE [Concomitant]
  5. DILTIAZEM HYDROCHLORIDE [Concomitant]
  6. DOCUSATE SODIUM (DOCUSATE SODIUM) [Concomitant]
  7. ALENDRONATE SODLUM (ALENDRONATE SODIUM) [Concomitant]

REACTIONS (4)
  - FALL [None]
  - RHABDOMYOLYSIS [None]
  - SYNCOPE [None]
  - URINARY TRACT INFECTION [None]
